FAERS Safety Report 17125776 (Version 1)
Quarter: 2019Q4

REPORT INFORMATION
  Report Type: Spontaneous
  Country: RU (occurrence: RU)
  Receive Date: 20191208
  Receipt Date: 20191208
  Transmission Date: 20200122
  Serious: Yes (Death)
  Sender: FDA-Public Use
  Company Number: NVSC2018RU000511

PATIENT

DRUGS (10)
  1. CYCLOSPORINE. [Suspect]
     Active Substance: CYCLOSPORINE
     Indication: IMMUNOSUPPRESSION
     Dosage: STARTED 2-3 D AFTER TRANSPLANTATION DOSE NEEDS TO ACHIEVE TARGET BLOOD CONCENTRATION
     Route: 048
  2. METHYLPREDNISOLONE. [Concomitant]
     Active Substance: METHYLPREDNISOLONE
     Dosage: 0.05 MG/KG, QD ((4 TH WEEK AFTER TRANSPLANTATION)
     Route: 048
  3. MYFORTIC [Suspect]
     Active Substance: MYCOPHENOLATE SODIUM
     Indication: PRODUCT USED FOR UNKNOWN INDICATION
     Dosage: 1440 MG, QD
     Route: 048
  4. CELLCEPT [Concomitant]
     Active Substance: MYCOPHENOLATE MOFETIL\MYCOPHENOLATE MOFETIL HYDROCHLORIDE
     Indication: PRODUCT USED FOR UNKNOWN INDICATION
     Dosage: 2000 MG, QD
     Route: 065
  5. CYCLOSPORINE. [Suspect]
     Active Substance: CYCLOSPORINE
     Dosage: STARTED 1 YEAR AFTER TRANSPLANTATION DOSE NEEDS TO ACHIEVE TARGET BLOOD CONCENTRATION
     Route: 048
  6. METHYLPREDNISOLONE. [Concomitant]
     Active Substance: METHYLPREDNISOLONE
     Indication: IMMUNOSUPPRESSION
     Dosage: 500 MG, QD (1ST DAY AFTER TRANSPLANTATION)
     Route: 041
  7. METHYLPREDNISOLONE. [Concomitant]
     Active Substance: METHYLPREDNISOLONE
     Dosage: 0.2 MG/KG, QD
     Route: 048
  8. SIMULECT [Suspect]
     Active Substance: BASILIXIMAB
     Indication: IMMUNOSUPPRESSION
     Route: 065
  9. TACROLIMUS. [Suspect]
     Active Substance: TACROLIMUS
     Indication: PRODUCT USED FOR UNKNOWN INDICATION
     Dosage: STARTED 2-3 D AFTER TRANSPLANTATION DOSE NEEDS TO ACHIEVE TARGET BLOOD CONCENTRATION
     Route: 048
  10. TACROLIMUS. [Suspect]
     Active Substance: TACROLIMUS
     Dosage: STARTED 1 YEAR AFTER TRANSPLANTATION DOSE NEEDS TO ACHIEVE TARGET BLOOD CONCENTRATION
     Route: 048

REACTIONS (1)
  - Lung neoplasm malignant [Fatal]
